FAERS Safety Report 4551953-2 (Version None)
Quarter: 2005Q1

REPORT INFORMATION
  Report Type: 
  Country: None (occurrence: None)
  Receive Date: 20050112
  Receipt Date: 20041222
  Transmission Date: 20050727
  Serious: Yes (Hospitalization, Other)
  Sender: FDA-Public Use
  Company Number: USA041182729

PATIENT
  Age: 75 Year
  Sex: Female

DRUGS (6)
  1. FORTEO [Suspect]
     Indication: OSTEOPOROSIS
     Dates: start: 20041014
  2. PAXIL [Concomitant]
  3. CALCIUM GLUCONATE [Concomitant]
  4. ECOTRIN [Concomitant]
  5. VITAMIN D [Concomitant]
  6. TYLENOL [Concomitant]

REACTIONS (6)
  - CHEST WALL PAIN [None]
  - CONSTIPATION [None]
  - FALL [None]
  - INJECTION SITE HAEMORRHAGE [None]
  - PHARMACEUTICAL PRODUCT COMPLAINT [None]
  - SPINAL COMPRESSION FRACTURE [None]
